FAERS Safety Report 14642801 (Version 1)
Quarter: 2018Q1

REPORT INFORMATION
  Report Type: Spontaneous
  Country: US (occurrence: US)
  Receive Date: 20180315
  Receipt Date: 20180315
  Transmission Date: 20180509
  Serious: No
  Sender: FDA-Public Use
  Company Number: None

PATIENT
  Age: 27 Year
  Sex: Female
  Weight: 97.52 kg

DRUGS (1)
  1. MIRENA [Suspect]
     Active Substance: LEVONORGESTREL

REACTIONS (6)
  - Embedded device [None]
  - Device dislocation [None]
  - Vaginal haemorrhage [None]
  - Abdominal distension [None]
  - Tenderness [None]
  - Blood pressure increased [None]

NARRATIVE: CASE EVENT DATE: 20180314
